FAERS Safety Report 15641173 (Version 1)
Quarter: 2018Q4

REPORT INFORMATION
  Report Type: Spontaneous
  Country: US (occurrence: US)
  Receive Date: 20181120
  Receipt Date: 20181120
  Transmission Date: 20190205
  Serious: Yes (Death, Hospitalization)
  Sender: FDA-Public Use
  Company Number: US-DSJP-DSU-2017-141235

PATIENT

DRUGS (1)
  1. BENICAR [Suspect]
     Active Substance: OLMESARTAN MEDOXOMIL
     Indication: HYPERTENSION
     Dosage: 40 MG, QD
     Dates: start: 20040407, end: 20140624

REACTIONS (3)
  - Sprue-like enteropathy [Unknown]
  - Death [Fatal]
  - Throat irritation [Recovered/Resolved]

NARRATIVE: CASE EVENT DATE: 20041201
